FAERS Safety Report 4496421-1 (Version None)
Quarter: 2004Q4

REPORT INFORMATION
  Report Type: 
  Country: None (occurrence: None)
  Receive Date: 20041109
  Receipt Date: 20041027
  Transmission Date: 20050328
  Serious: Yes (Hospitalization)
  Sender: FDA-Public Use
  Company Number: FR-JNJFOC-20040800680

PATIENT
  Age: 82 Year
  Sex: Female
  Weight: 51 kg

DRUGS (6)
  1. HALDOL FAIBLE [Suspect]
     Indication: DRUG USE FOR UNKNOWN INDICATION
     Route: 049
  2. ARTANE [Interacting]
     Indication: DRUG USE FOR UNKNOWN INDICATION
     Route: 049
     Dates: start: 20040629, end: 20040701
  3. CAPTOPRIL [Interacting]
     Indication: DRUG USE FOR UNKNOWN INDICATION
     Route: 049
  4. KARDEGIC [Concomitant]
  5. DEROXAT [Concomitant]
  6. ADANCOR [Concomitant]

REACTIONS (8)
  - CEREBRAL HAEMATOMA [None]
  - DISORIENTATION [None]
  - DRUG INTERACTION [None]
  - EXTRAPYRAMIDAL DISORDER [None]
  - FALL [None]
  - INTRAVENTRICULAR HAEMORRHAGE [None]
  - ORTHOSTATIC HYPOTENSION [None]
  - RHABDOMYOLYSIS [None]
